FAERS Safety Report 10414760 (Version 1)
Quarter: 2014Q3

REPORT INFORMATION
  Report Type: Spontaneous
  Country: US (occurrence: None)
  Receive Date: 20140827
  Receipt Date: 20140827
  Transmission Date: 20150326
  Serious: Yes (Death)
  Sender: FDA-Public Use
  Company Number: None

PATIENT
  Age: 69 Year
  Sex: Male

DRUGS (8)
  1. MELPHALAN [Suspect]
     Active Substance: MELPHALAN
     Indication: STEM CELL TRANSPLANT
     Dates: start: 20140405, end: 20140406
  2. ATG [Concomitant]
     Active Substance: LAPINE T-LYMPHOCYTE IMMUNE GLOBULIN
  3. DAPTOMYCIN [Concomitant]
     Active Substance: DAPTOMYCIN
  4. FLUDARABINE [Suspect]
     Active Substance: FLUDARABINE PHOSPHATE
     Indication: STEM CELL TRANSPLANT
     Dates: start: 20140401, end: 20140405
  5. AMPICILLIN [Concomitant]
     Active Substance: AMPICILLIN
  6. METHYLPREDNISOLONE [Concomitant]
     Active Substance: METHYLPREDNISOLONE
  7. CEFAPIME [Concomitant]
  8. CEFTRIAXONE. [Concomitant]
     Active Substance: CEFTRIAXONE

REACTIONS (4)
  - Abdominal pain [None]
  - Intestinal perforation [None]
  - Respiratory failure [None]
  - Whipple^s disease [None]

NARRATIVE: CASE EVENT DATE: 20140823
